FAERS Safety Report 7623472-8 (Version None)
Quarter: 2011Q3

REPORT INFORMATION
  Report Type: 
  Country: None (occurrence: None)
  Receive Date: 20110720
  Receipt Date: 20110712
  Transmission Date: 20111222
  Serious: Yes (Hospitalization)
  Sender: FDA-Public Use
  Company Number: PHHY2011GB61982

PATIENT
  Age: 66 Year
  Sex: Male

DRUGS (1)
  1. WARFARIN SODIUM [Suspect]

REACTIONS (13)
  - UPPER AIRWAY OBSTRUCTION [None]
  - HAEMATOMA [None]
  - COUGH [None]
  - OROPHARYNGEAL PAIN [None]
  - DYSPHONIA [None]
  - HEART RATE IRREGULAR [None]
  - CONTUSION [None]
  - ODYNOPHAGIA [None]
  - OEDEMA MOUTH [None]
  - EPIGLOTTIC OEDEMA [None]
  - LOCAL SWELLING [None]
  - LARYNGEAL HAEMATOMA [None]
  - DYSPNOEA [None]
